FAERS Safety Report 16271685 (Version 1)
Quarter: 2019Q2

REPORT INFORMATION
  Report Type: Spontaneous
  Country: ES (occurrence: ES)
  Receive Date: 20190503
  Receipt Date: 20190503
  Transmission Date: 20190711
  Serious: Yes (Death, Hospitalization)
  Sender: FDA-Public Use
  Company Number: ES-TEVA-2019-ES-1043908

PATIENT
  Age: 89 Year
  Sex: Female

DRUGS (2)
  1. CITALOPRAM [Suspect]
     Active Substance: CITALOPRAM HYDROBROMIDE
     Dosage: 1-0-0
     Route: 048
     Dates: start: 20170430, end: 20180426
  2. METAMIZOL [Interacting]
     Active Substance: METAMIZOLE SODIUM
     Dosage: 1-1-1
     Route: 048
     Dates: start: 20170430, end: 20180426

REACTIONS (4)
  - Gastrointestinal haemorrhage [Fatal]
  - Drug interaction [Unknown]
  - Concomitant disease aggravated [Fatal]
  - Anaemia [Fatal]

NARRATIVE: CASE EVENT DATE: 20180426
